FAERS Safety Report 21800870 (Version 1)
Quarter: 2022Q4

REPORT INFORMATION
  Report Type: Spontaneous
  Country: US (occurrence: None)
  Receive Date: 20221229
  Receipt Date: 20221229
  Transmission Date: 20230113
  Serious: Yes (Other)
  Sender: FDA-Public Use
  Company Number: None

PATIENT
  Age: 28 Year
  Sex: Male
  Weight: 89.1 kg

DRUGS (1)
  1. SILDENAFIL [Suspect]
     Active Substance: SILDENAFIL
     Indication: Disturbance in sexual arousal
     Dosage: FREQUENCY : DAILY;?
     Route: 048
     Dates: start: 20221201

REACTIONS (3)
  - Hiccups [None]
  - Abdominal distension [None]
  - Sinus congestion [None]

NARRATIVE: CASE EVENT DATE: 20221228
